FAERS Safety Report 6660767-9 (Version None)
Quarter: 2010Q1

REPORT INFORMATION
  Report Type: 
  Country: None (occurrence: None)
  Receive Date: 20100331
  Receipt Date: 20100325
  Transmission Date: 20100710
  Serious: Yes (Other)
  Sender: FDA-Public Use
  Company Number: FR-ROCHE-678683

PATIENT
  Age: 40 Year
  Sex: Male

DRUGS (1)
  1. MIRCERA [Suspect]
     Route: 058

REACTIONS (3)
  - ORAL PAIN [None]
  - RASH [None]
  - TONGUE OEDEMA [None]
